FAERS Safety Report 14267211 (Version 1)
Quarter: 2017Q4

REPORT INFORMATION
  Report Type: Report from Study
  Country: JP (occurrence: JP)
  Receive Date: 20171211
  Receipt Date: 20171211
  Transmission Date: 20180321
  Serious: Yes (Other)
  Sender: FDA-Public Use
  Company Number: JP-CIPLA (EU) LIMITED-2017JP22024

PATIENT

DRUGS (1)
  1. AMLODIPINE [Suspect]
     Active Substance: AMLODIPINE BESYLATE
     Indication: PROCEDURAL HYPERTENSION
     Dosage: 5-10 MG PER DAY
     Route: 048

REACTIONS (1)
  - Electrocardiogram QT prolonged [Unknown]
